FAERS Safety Report 6970557-5 (Version None)
Quarter: 2010Q3

REPORT INFORMATION
  Report Type: 
  Country: None (occurrence: None)
  Receive Date: 20100908
  Receipt Date: 20100901
  Transmission Date: 20110219
  Serious: Yes (Other)
  Sender: FDA-Public Use
  Company Number: DE-ROCHE-723988

PATIENT
  Sex: Female

DRUGS (3)
  1. AVASTIN [Suspect]
     Indication: GLIOBLASTOMA
     Dosage: 3 CYCLES
     Route: 042
     Dates: start: 20100428, end: 20100610
  2. OXAZEPAM [Concomitant]
     Indication: DEPRESSION
     Route: 048
     Dates: start: 20100101, end: 20100610
  3. DOXEPIN HCL [Concomitant]
     Indication: DEPRESSION
     Route: 048
     Dates: start: 20100101, end: 20100610

REACTIONS (10)
  - ASTHENIA [None]
  - BLINDNESS [None]
  - DIARRHOEA [None]
  - DYSPHAGIA [None]
  - EPISTAXIS [None]
  - LARYNGITIS [None]
  - OPTIC NERVE INJURY [None]
  - PANCYTOPENIA [None]
  - PYREXIA [None]
  - VISUAL ACUITY REDUCED [None]
